FAERS Safety Report 5513832-3 (Version None)
Quarter: 2007Q4

REPORT INFORMATION
  Report Type: 
  Country: None (occurrence: None)
  Receive Date: 20071113
  Receipt Date: 20071108
  Transmission Date: 20080405
  Serious: Yes (Life-Threatening, Hospitalization, Other)
  Sender: FDA-Public Use
  Company Number: JP-ELI_LILLY_AND_COMPANY-JP200708006887

PATIENT
  Sex: Male
  Weight: 82 kg

DRUGS (9)
  1. ZYPREXA [Suspect]
     Indication: SCHIZOPHRENIA
     Dosage: 10 MG, DAILY (1/D)
     Route: 048
     Dates: start: 20010717, end: 20011204
  2. ZYPREXA [Suspect]
     Dosage: 15 MG, DAILY (1/D)
     Route: 048
     Dates: start: 20011204, end: 20070717
  3. ZYPREXA [Suspect]
     Dosage: 15 MG, DAILY (1/D)
     Route: 048
     Dates: end: 20070824
  4. SERENACE [Concomitant]
     Dosage: 0.75 MG, DAILY (1/D)
     Route: 048
     Dates: start: 20000418, end: 20011120
  5. SERENACE [Concomitant]
     Dosage: 1.25 MG, DAILY (1/D)
     Route: 048
     Dates: start: 20011120, end: 20020604
  6. SERENACE [Concomitant]
     Dosage: 0.75 MG, DAILY (1/D)
     Route: 048
     Dates: start: 20020604, end: 20020730
  7. SERENACE [Concomitant]
     Dosage: 0.375 MG, DAILY (1/D)
     Route: 048
     Dates: start: 20020730, end: 20070424
  8. BIPERIDEN HYDROCHLORIDE TAB [Concomitant]
     Dosage: 1 MG, 3/D
     Route: 048
     Dates: start: 20000418, end: 20021119
  9. BIPERIDEN HYDROCHLORIDE TAB [Concomitant]
     Dosage: 1 MG, DAILY (1/D)
     Route: 048
     Dates: start: 20021119, end: 20070717

REACTIONS (12)
  - ABDOMINAL PAIN [None]
  - ALANINE AMINOTRANSFERASE INCREASED [None]
  - ASPARTATE AMINOTRANSFERASE INCREASED [None]
  - BLOOD CHOLESTEROL INCREASED [None]
  - BLOOD LACTATE DEHYDROGENASE INCREASED [None]
  - BLOOD TRIGLYCERIDES INCREASED [None]
  - GAMMA-GLUTAMYLTRANSFERASE INCREASED [None]
  - HYPERLIPIDAEMIA [None]
  - NAUSEA [None]
  - OBESITY [None]
  - PANCREATITIS ACUTE [None]
  - WEIGHT DECREASED [None]
